FAERS Safety Report 8025443-9 (Version None)
Quarter: 2011Q4

REPORT INFORMATION
  Report Type: 
  Country: None (occurrence: None)
  Receive Date: 20111130
  Receipt Date: 20101220
  Transmission Date: 20120403
  Serious: Yes (Hospitalization)
  Sender: FDA-Public Use
  Company Number: 2010006302

PATIENT
  Age: 51 Year
  Sex: Female
  Weight: 81.6475 kg

DRUGS (2)
  1. TRISENOX [Suspect]
     Indication: ACUTE PROMYELOCYTIC LEUKAEMIA
     Dosage: (11.85 DAILY X5/WK, X4 WKS Q 8 WKS),INTRAVENOUS DRIP
     Route: 041
     Dates: start: 20100618, end: 20101115
  2. ATRACURIUM BESYLATE [Suspect]
     Indication: ACUTE PROMYELOCYTIC LEUKAEMIA
     Dosage: (100 MG,2 DOSES PO TWICE DAILY X 14 DAYS),ORAL
     Route: 048

REACTIONS (3)
  - DRUG ERUPTION [None]
  - MALAISE [None]
  - PYREXIA [None]
